FAERS Safety Report 16681711 (Version 1)
Quarter: 2019Q3

REPORT INFORMATION
  Report Type: Spontaneous
  Country: NL (occurrence: NL)
  Receive Date: 20190808
  Receipt Date: 20190808
  Transmission Date: 20191004
  Serious: Yes (Other)
  Sender: FDA-Public Use
  Company Number: NL-TEVA-2019-NL-1089736

PATIENT
  Age: 58 Year
  Sex: Female

DRUGS (2)
  1. NITROFURANTOINE CAPSULE, 50 MG (MILLIGRAM) [Suspect]
     Active Substance: NITROFURANTOIN
     Indication: CYSTITIS
     Dosage: 4X PER DAY 1 CAPSULE
     Dates: start: 20190702, end: 20190704
  2. LEVOCETIRIZINE TABL 5MG [Concomitant]
     Dosage: 1X PER DAY 1 TABLET

REACTIONS (2)
  - Visual impairment [Recovered/Resolved]
  - Syncope [Recovered/Resolved]

NARRATIVE: CASE EVENT DATE: 20190703
